FAERS Safety Report 6572554-0 (Version None)
Quarter: 2010Q1

REPORT INFORMATION
  Report Type: 
  Country: None (occurrence: None)
  Receive Date: 20100205
  Receipt Date: 20100126
  Transmission Date: 20100710
  Serious: Yes (Hospitalization)
  Sender: FDA-Public Use
  Company Number: DE-WYE-H10255309

PATIENT
  Age: 77 Year
  Sex: Female

DRUGS (9)
  1. PANTOZOL [Suspect]
     Indication: HELICOBACTER INFECTION
     Route: 048
     Dates: start: 20090130
  2. CIPRO [Suspect]
     Indication: URINARY TRACT INFECTION
     Route: 048
     Dates: start: 20090205, end: 20090208
  3. AVELOX [Suspect]
     Indication: BRONCHITIS
     Route: 048
     Dates: start: 20090106, end: 20090111
  4. ZYPREXA [Concomitant]
     Indication: SCHIZOAFFECTIVE DISORDER
     Route: 048
  5. RULID [Suspect]
     Indication: RESPIRATORY TRACT INFECTION
     Route: 048
     Dates: start: 20090123, end: 20090130
  6. CITALOPRAM [Concomitant]
     Indication: DEPRESSION
     Dosage: UNKNOWN
     Route: 048
  7. TOREM [Concomitant]
     Indication: HYPERTENSION
     Dosage: UNKNOWN
     Route: 048
  8. AMOXYPEN ^BRISTOL^ [Suspect]
     Indication: HELICOBACTER INFECTION
     Route: 048
     Dates: start: 20090130, end: 20090211
  9. KLACID [Suspect]
     Indication: HELICOBACTER GASTRITIS
     Route: 048
     Dates: start: 20090130, end: 20090211

REACTIONS (1)
  - CLOSTRIDIUM DIFFICILE COLITIS [None]
